FAERS Safety Report 11840390 (Version 1)
Quarter: 2015Q4

REPORT INFORMATION
  Report Type: Spontaneous
  Country: US (occurrence: US)
  Receive Date: 20151216
  Receipt Date: 20151216
  Transmission Date: 20160305
  Serious: No
  Sender: FDA-Public Use
  Company Number: US-GALDERMA-US15007304

PATIENT
  Age: 50 Year
  Sex: Female

DRUGS (2)
  1. CETAPHIL [Concomitant]
     Active Substance: AVOBENZONE\OCTOCRYLENE\TRICLOSAN
     Indication: THERAPEUTIC SKIN CARE TOPICAL
     Route: 061
  2. MIRVASO [Suspect]
     Active Substance: BRIMONIDINE TARTRATE
     Indication: ROSACEA
     Dosage: 0.33%
     Route: 061
     Dates: start: 201509, end: 201509

REACTIONS (4)
  - Product use issue [Recovered/Resolved]
  - Acne [Recovered/Resolved]
  - Rash erythematous [Recovered/Resolved]
  - Erythema [Recovered/Resolved]

NARRATIVE: CASE EVENT DATE: 201509
